FAERS Safety Report 19283304 (Version 1)
Quarter: 2021Q2

REPORT INFORMATION
  Report Type: Spontaneous
  Country: RU (occurrence: RU)
  Receive Date: 20210521
  Receipt Date: 20210521
  Transmission Date: 20210717
  Serious: Yes (Hospitalization)
  Sender: FDA-Public Use
  Company Number: RU-ALXN-A202105746

PATIENT
  Weight: 80 kg

DRUGS (1)
  1. STRENSIQ [Suspect]
     Active Substance: ASFOTASE ALFA
     Indication: HYPOPHOSPHATASIA
     Dosage: 1 MG/KG (0.8 ML), SIX TIMES/WEEK
     Route: 065
     Dates: start: 202003

REACTIONS (1)
  - Suspected COVID-19 [Unknown]
